FAERS Safety Report 7700591-9 (Version None)
Quarter: 2011Q3

REPORT INFORMATION
  Report Type: 
  Country: None (occurrence: None)
  Receive Date: 20110822
  Receipt Date: 20110427
  Transmission Date: 20111222
  Serious: Yes (Other)
  Sender: FDA-Public Use
  Company Number: US-AMGEN-USASP2011020894

PATIENT
  Sex: Male

DRUGS (1)
  1. NPLATE [Suspect]
     Indication: IDIOPATHIC THROMBOCYTOPENIC PURPURA
     Dosage: 1 A?G/KG, UNK
     Dates: start: 20101101

REACTIONS (1)
  - THERAPEUTIC RESPONSE DECREASED [None]
